FAERS Safety Report 10359457 (Version 2)
Quarter: 2014Q3

REPORT INFORMATION
  Report Type: Spontaneous
  Country: US (occurrence: US)
  Receive Date: 20140804
  Receipt Date: 20140804
  Transmission Date: 20150326
  Serious: Yes (Other)
  Sender: FDA-Public Use
  Company Number: US-009507513-2009-191442-NL

PATIENT
  Sex: Female
  Weight: 68.27 kg

DRUGS (1)
  1. NUVARING [Suspect]
     Active Substance: ETHINYL ESTRADIOL\ETONOGESTREL
     Indication: MENSTRUAL DISORDER
     Dosage: DOSE TEXT: 3 WEEKS IN, 1 WEEK OUT, CONTINUING: NO
     Route: 067
     Dates: start: 20080923, end: 200902

REACTIONS (6)
  - Off label use [Unknown]
  - Menopausal disorder [Unknown]
  - Deep vein thrombosis [Unknown]
  - Pulmonary embolism [Unknown]
  - Cervical cyst [Unknown]
  - Rectocele [Unknown]

NARRATIVE: CASE EVENT DATE: 20080923
